FAERS Safety Report 20755302 (Version 2)
Quarter: 2022Q2

REPORT INFORMATION
  Report Type: Spontaneous
  Country: JP (occurrence: JP)
  Receive Date: 20220427
  Receipt Date: 20220624
  Transmission Date: 20220720
  Serious: Yes (Other)
  Sender: FDA-Public Use
  Company Number: JP-KYOWAKIRIN-2022AKK006114

PATIENT
  Age: 77 Year
  Sex: Female

DRUGS (2)
  1. DARBEPOETIN ALFA [Suspect]
     Active Substance: DARBEPOETIN ALFA
     Indication: Product used for unknown indication
     Dosage: UNK
     Route: 065
     Dates: start: 20220405
  2. EVOCALCET [Suspect]
     Active Substance: EVOCALCET
     Indication: Product used for unknown indication
     Dosage: UNK
     Route: 048
     Dates: start: 20220405

REACTIONS (2)
  - Pulmonary toxicity [Unknown]
  - Interstitial lung disease [Recovered/Resolved]

NARRATIVE: CASE EVENT DATE: 20220412
